FAERS Safety Report 9350220 (Version 2)
Quarter: 2013Q3

REPORT INFORMATION
  Report Type: Spontaneous
  Country: JP (occurrence: JP)
  Receive Date: 20130617
  Receipt Date: 20130731
  Transmission Date: 20140515
  Serious: No
  Sender: FDA-Public Use
  Company Number: JP-MERCK-1306JPN006068

PATIENT
  Age: 42 Year
  Sex: Female

DRUGS (4)
  1. REFLEX [Suspect]
     Indication: DEPRESSIVE SYMPTOM
     Dosage: 7.5 MG DAILY
     Route: 048
     Dates: start: 20100112, end: 20100113
  2. REFLEX [Suspect]
     Dosage: 7.5 MG DAILY
     Route: 048
     Dates: end: 20100127
  3. REFLEX [Suspect]
     Dosage: 7.5 MG DAILY
     Route: 048
     Dates: start: 20100302, end: 20100304
  4. REFLEX [Suspect]
     Dosage: 15 MG DAILY
     Route: 048
     Dates: start: 20100305, end: 20100423

REACTIONS (1)
  - Drug eruption [Recovered/Resolved]
